FAERS Safety Report 4558070-6 (Version None)
Quarter: 2005Q1

REPORT INFORMATION
  Report Type: 
  Country: None (occurrence: None)
  Receive Date: 20050121
  Receipt Date: 20040825
  Transmission Date: 20050727
  Serious: Yes (Other)
  Sender: FDA-Public Use
  Company Number: US-BRISTOL-MYERS SQUIBB COMPANY-12683678

PATIENT
  Age: 31 Year
  Sex: Male
  Weight: 113 kg

DRUGS (1)
  1. SERZONE [Suspect]
     Indication: BIPOLAR I DISORDER
     Dosage: INITIATED THERAPY IN 1999 OR 2000 AND DISCONTINUED ^A COUPLE OF MONTHS AGO^
     Route: 048
     Dates: end: 20040101

REACTIONS (1)
  - HEPATIC ENZYME INCREASED [None]
